FAERS Safety Report 6008099-6 (Version None)
Quarter: 2008Q4

REPORT INFORMATION
  Report Type: 
  Country: None (occurrence: None)
  Receive Date: 20081217
  Receipt Date: 20080821
  Transmission Date: 20090506
  Serious: No
  Sender: FDA-Public Use
  Company Number: US-ASTRAZENECA-2008UW17139

PATIENT
  Age: 77 Year
  Sex: Female
  Weight: 56.7 kg

DRUGS (9)
  1. CRESTOR [Suspect]
     Indication: BLOOD CHOLESTEROL INCREASED
     Dosage: 10 MG
     Route: 048
     Dates: start: 20080808
  2. ASPIRIN [Concomitant]
  3. VIT C [Concomitant]
  4. CALCIUM + VIT D [Concomitant]
  5. PLAVIX [Concomitant]
  6. BONIVA [Concomitant]
  7. LISINOPRIL [Concomitant]
  8. POTASSIUM CHLORIDE [Concomitant]
  9. M.V.I. [Concomitant]

REACTIONS (3)
  - COUGH [None]
  - DIZZINESS [None]
  - OROPHARYNGEAL PAIN [None]
